FAERS Safety Report 13125858 (Version 3)
Quarter: 2017Q2

REPORT INFORMATION
  Report Type: Spontaneous
  Country: US (occurrence: US)
  Receive Date: 20170118
  Receipt Date: 20170522
  Transmission Date: 20170830
  Serious: Yes (Hospitalization, Other)
  Sender: FDA-Public Use
  Company Number: US-PFIZER INC-2017018078

PATIENT
  Age: 70 Year
  Sex: Male
  Weight: 111 kg

DRUGS (11)
  1. VALSARTAN HCTZ [Concomitant]
     Active Substance: HYDROCHLOROTHIAZIDE\VALSARTAN
     Indication: HYPERTENSION
     Dosage: [VALSARTAN 160MG]/[HYDROCHLOROTHIAZIDE 25MG], ONCE DAILY
     Dates: start: 2012
  2. BAYER LOW ADULT STRENGTH ASPIRIN [Concomitant]
     Dosage: 81 MG, 1X/DAY
     Dates: start: 2013
  3. GLUCOSAMINE CHONDROITIN TRIPLE STRENGTH [Concomitant]
     Dosage: UNK UNK, 2X/DAY
     Dates: start: 2016
  4. FISH OIL [Concomitant]
     Active Substance: FISH OIL
     Dosage: UNK UNK, 2X/DAY
     Dates: start: 2012
  5. VITAMIN D3 [Concomitant]
     Active Substance: CHOLECALCIFEROL
     Dosage: UNK UNK, 1X/DAY
     Dates: start: 2014
  6. ROSUVASTATIN. [Concomitant]
     Active Substance: ROSUVASTATIN
     Indication: BLOOD CHOLESTEROL ABNORMAL
     Dosage: 10 MG, 1X/DAY
     Dates: start: 2013
  7. ADVIL PM [Suspect]
     Active Substance: DIPHENHYDRAMINE CITRATE\IBUPROFEN
     Indication: SLEEP DISORDER
     Dosage: [IBUPROFEN 200MG]/[DIPHENHYDRAMIN CITRATE 38MG] TWO CAPLETS EVERY EVENING
     Route: 048
     Dates: start: 201012
  8. ADVIL PM [Suspect]
     Active Substance: DIPHENHYDRAMINE CITRATE\IBUPROFEN
     Indication: VIRAL INFECTION
  9. METFORMIN [Concomitant]
     Active Substance: METFORMIN HYDROCHLORIDE
     Indication: DIABETES MELLITUS
     Dosage: 1000 MG IN THE MORNING, 500 MG IN THE AFTERNOON AND 1000 MG AT NIGHT
     Route: 048
     Dates: start: 2012
  10. GLIPIZIDE. [Concomitant]
     Active Substance: GLIPIZIDE
     Indication: DIABETES MELLITUS
     Dosage: 10 MG, 2X/DAY
     Route: 048
     Dates: start: 2013
  11. STRESSTAB /03308001/ [Concomitant]
     Dosage: 1 DF, 1X/DAY

REACTIONS (4)
  - Drug use disorder [Not Recovered/Not Resolved]
  - Tooth infection [Not Recovered/Not Resolved]
  - Poor quality sleep [Not Recovered/Not Resolved]
  - Product use in unapproved indication [Unknown]

NARRATIVE: CASE EVENT DATE: 201012
